FAERS Safety Report 7638773-7 (Version None)
Quarter: 2011Q3

REPORT INFORMATION
  Report Type: 
  Country: None (occurrence: None)
  Receive Date: 20110727
  Receipt Date: 20110713
  Transmission Date: 20111222
  Serious: Yes (Death)
  Sender: FDA-Public Use
  Company Number: AU-ROCHE-790296

PATIENT
  Age: 44 Year

DRUGS (6)
  1. CITALOPRAM HYDROBROMIDE [Suspect]
     Route: 065
  2. DIAZEPAM [Suspect]
     Route: 065
  3. METHADONE HYDROCHLORIDE [Suspect]
     Route: 065
  4. MIRTAZAPINE [Suspect]
     Route: 065
  5. METHAMPHETAMINE HYDROCHLORIDE [Suspect]
     Dosage: DRUG NAME REPORTED METHYLAMPHETAMINE HYDROCHLORIDE.
     Route: 065
  6. CHLORPROMAZINE HYDROCHLORIDE [Suspect]
     Route: 065

REACTIONS (3)
  - TOXICITY TO VARIOUS AGENTS [None]
  - RESPIRATORY DEPRESSION [None]
  - SNORING [None]
